FAERS Safety Report 4551827-7 (Version None)
Quarter: 2005Q1

REPORT INFORMATION
  Report Type: 
  Country: None (occurrence: None)
  Receive Date: 20050111
  Receipt Date: 20041228
  Transmission Date: 20050727
  Serious: Yes (Hospitalization, Other)
  Sender: FDA-Public Use
  Company Number: FR-2004-034158

PATIENT
  Age: 60 Year
  Sex: Female
  Weight: 64 kg

DRUGS (5)
  1. FLUDARA [Suspect]
     Indication: NON-HODGKIN'S LYMPHOMA
     Dosage: SEE IMAGE
     Route: 042
     Dates: start: 20040921, end: 20040923
  2. FLUDARA [Suspect]
     Indication: NON-HODGKIN'S LYMPHOMA
     Dosage: SEE IMAGE
     Route: 042
     Dates: start: 20041026
  3. NEORECORMON                    (EPOETIN BETA) [Suspect]
     Indication: ANAEMIA
     Dosage: 30000 IU, 1X/WEEK, SUBCUTANEOUS
     Route: 058
     Dates: start: 20040923, end: 20041028
  4. ENDOXAN [Concomitant]
  5. FASTURTEC (RASBURICASE) [Concomitant]

REACTIONS (3)
  - AGRANULOCYTOSIS [None]
  - ANAEMIA [None]
  - EOSINOPHILIA [None]
